FAERS Safety Report 7123523-3 (Version None)
Quarter: 2010Q4

REPORT INFORMATION
  Report Type: 
  Country: None (occurrence: None)
  Receive Date: 20101125
  Receipt Date: 20101117
  Transmission Date: 20110411
  Serious: Yes (Death)
  Sender: FDA-Public Use
  Company Number: VE-PFIZER INC-2010141077

PATIENT
  Age: 84 Year
  Sex: Male

DRUGS (3)
  1. LIPITOR [Suspect]
     Indication: HYPERCHOLESTEROLAEMIA
     Dosage: 20 MG, 1X/DAY
     Route: 048
     Dates: start: 20040101, end: 20080101
  2. LIPITOR [Suspect]
     Indication: CORONARY ARTERY OCCLUSION
  3. CORAZEM [Concomitant]
     Dosage: UNK
     Route: 048

REACTIONS (1)
  - RESPIRATORY FAILURE [None]
